FAERS Safety Report 8014759-8 (Version None)
Quarter: 2011Q4

REPORT INFORMATION
  Report Type: 
  Country: None (occurrence: None)
  Receive Date: 20111229
  Receipt Date: 20111220
  Transmission Date: 20120403
  Serious: Yes (Other)
  Sender: FDA-Public Use
  Company Number: JP-SANOFI-AVENTIS-2011SA084212

PATIENT
  Age: 74 Year
  Sex: Male

DRUGS (3)
  1. FLUOROURACIL [Suspect]
     Route: 065
     Dates: start: 20100701
  2. CISPLATIN [Suspect]
     Route: 065
     Dates: start: 20100701
  3. DOCETAXEL [Suspect]
     Route: 065
     Dates: start: 20100701

REACTIONS (8)
  - LEUKOPENIA [None]
  - HYPOKALAEMIA [None]
  - NEUTROPENIA [None]
  - HYPONATRAEMIA [None]
  - DECREASED APPETITE [None]
  - ALTERED STATE OF CONSCIOUSNESS [None]
  - DIARRHOEA [None]
  - GASTROINTESTINAL INFLAMMATION [None]
